FAERS Safety Report 7483344-9 (Version None)
Quarter: 2011Q2

REPORT INFORMATION
  Report Type: 
  Country: None (occurrence: None)
  Receive Date: 20110517
  Receipt Date: 20110415
  Transmission Date: 20111010
  Serious: Yes (Hospitalization, Other)
  Sender: FDA-Public Use
  Company Number: US-BAYER-201016093NA

PATIENT
  Age: 21 Year
  Sex: Female
  Weight: 52 kg

DRUGS (6)
  1. ZANTAC [Concomitant]
  2. PENICILLIN V [Concomitant]
  3. DROSPIRENONE AND ETHINYL ESTRADIOL [Suspect]
     Indication: ACNE
     Dates: start: 20050501, end: 20090515
  4. YAZ [Suspect]
     Indication: PRODUCT USED FOR UNKNOWN INDICATION
     Route: 048
  5. YASMIN [Suspect]
     Indication: PRODUCT USED FOR UNKNOWN INDICATION
     Dates: start: 20050501, end: 20090515
  6. ULTRAM [Concomitant]

REACTIONS (2)
  - ABDOMINAL PAIN [None]
  - CHOLECYSTITIS CHRONIC [None]
